FAERS Safety Report 9813869 (Version 4)
Quarter: 2014Q4

REPORT INFORMATION
  Report Type: Spontaneous
  Country: US (occurrence: US)
  Receive Date: 20140113
  Receipt Date: 20141008
  Transmission Date: 20150529
  Serious: Yes (Hospitalization, Disabling, Other)
  Sender: FDA-Public Use
  Company Number: US-MERCK-1401USA003999

PATIENT
  Sex: Female
  Weight: 79.37 kg

DRUGS (1)
  1. JANUVIA [Suspect]
     Active Substance: SITAGLIPTIN PHOSPHATE
     Indication: TYPE 2 DIABETES MELLITUS
     Dosage: 50 MG, QD
     Route: 048
     Dates: start: 20080830, end: 20100528

REACTIONS (23)
  - Flank pain [Unknown]
  - Cystitis [Unknown]
  - Hepatic cyst [Unknown]
  - Anaemia [Unknown]
  - Colon adenoma [Unknown]
  - Hysterectomy [Unknown]
  - Electrocardiogram ST segment abnormal [Unknown]
  - Urinary tract infection [Unknown]
  - Adrenal disorder [Unknown]
  - Renal colic [Unknown]
  - Poor quality sleep [Unknown]
  - Hydronephrosis [Unknown]
  - Ventricular extrasystoles [Unknown]
  - Urinary tract infection [Unknown]
  - Hypokalaemia [Unknown]
  - Blood creatinine increased [Unknown]
  - Rhinorrhoea [Unknown]
  - Drug ineffective [Unknown]
  - Abdominal pain [Unknown]
  - Pancreatic carcinoma metastatic [Not Recovered/Not Resolved]
  - Arterial disorder [Unknown]
  - Dyspnoea [Unknown]
  - Dyspnoea [Unknown]

NARRATIVE: CASE EVENT DATE: 20110720
